FAERS Safety Report 8361136-6 (Version None)
Quarter: 2012Q2

REPORT INFORMATION
  Report Type: 
  Country: None (occurrence: None)
  Receive Date: 20120515
  Receipt Date: 20120430
  Transmission Date: 20120825
  Serious: Yes (Congenital Anomaly, Other)
  Sender: FDA-Public Use
  Company Number: DE-WATSON-2012-07689

PATIENT
  Sex: Male

DRUGS (9)
  1. MORPHINE [Suspect]
     Indication: PAIN
     Dosage: 300 [MG/D (BIS 40) ]/ SLOW DOSAGE INCREASE FROM 40 TO 300 MG/D MAX SINCE 20TH GW^
     Route: 064
     Dates: start: 20091013, end: 20100613
  2. HALDOL [Concomitant]
     Indication: DEPRESSION
     Dosage: [MG/D ]/ 2X5 DROPS PER DAY
     Route: 064
     Dates: end: 20100218
  3. MEPERIDINE HCL [Suspect]
     Indication: PAIN
     Dosage: UP TO 9 TIMES PER DAY (MAX), ONLY IF NEEDED
     Route: 064
     Dates: start: 20091013, end: 20100613
  4. OMEP                               /00661201/ [Concomitant]
     Indication: GASTRITIS PROPHYLAXIS
     Dosage: 20 MG DAILY
     Route: 064
  5. ANTACIDS [Concomitant]
     Indication: GASTRITIS PROPHYLAXIS
     Dosage: UNK
     Route: 064
  6. HYDROXYUREA [Suspect]
     Indication: SICKLE CELL ANAEMIA
     Dosage: 1000 [MG/D ]/1000 MG WAS THE MAXIMUM DOSAGE
     Route: 064
     Dates: start: 20091013, end: 20100218
  7. MELPERON [Suspect]
     Indication: DEPRESSION
     Dosage: 3X1 TBL./D;DOSAGE UNKNOWN
     Route: 064
     Dates: end: 20100218
  8. FOLIC ACID [Concomitant]
     Indication: VITAMIN SUPPLEMENTATION
     Dosage: UNK
     Route: 064
  9. VALDOXAN [Suspect]
     Indication: DEPRESSION
     Dosage: 25 MG DAILY
     Route: 064
     Dates: end: 20100218

REACTIONS (3)
  - DRUG WITHDRAWAL SYNDROME NEONATAL [None]
  - OESOPHAGEAL ATRESIA [None]
  - MATERNAL DRUGS AFFECTING FOETUS [None]
